FAERS Safety Report 7787219-7 (Version None)
Quarter: 2011Q3

REPORT INFORMATION
  Report Type: 
  Country: None (occurrence: None)
  Receive Date: 20110929
  Receipt Date: 20110919
  Transmission Date: 20111222
  Serious: Yes (Other)
  Sender: FDA-Public Use
  Company Number: CA-JNJFOC-20110908159

PATIENT
  Age: 90 Year
  Sex: Female
  Weight: 68.04 kg

DRUGS (4)
  1. UNSPECIFIED ANTI-HYPERTENSIVE MEDICATION [Concomitant]
  2. VITAMIN TAB [Concomitant]
  3. TYLENOL-500 [Suspect]
     Route: 048
  4. TYLENOL-500 [Suspect]
     Indication: ARTHRITIS
     Route: 048
     Dates: end: 20110919

REACTIONS (1)
  - HALLUCINATION [None]
